FAERS Safety Report 13089735 (Version 1)
Quarter: 2017Q1

REPORT INFORMATION
  Report Type: Spontaneous
  Country: US (occurrence: US)
  Receive Date: 20170105
  Receipt Date: 20170105
  Transmission Date: 20170428
  Serious: Yes (Hospitalization, Other)
  Sender: FDA-Public Use
  Company Number: None

PATIENT

DRUGS (1)
  1. XARELTO [Suspect]
     Active Substance: RIVAROXABAN

REACTIONS (5)
  - Pulmonary embolism [None]
  - Gastrointestinal haemorrhage [None]
  - Epistaxis [None]
  - Contusion [None]
  - Shock [None]

NARRATIVE: CASE EVENT DATE: 20161218
